FAERS Safety Report 17159328 (Version 2)
Quarter: 2020Q4

REPORT INFORMATION
  Report Type: Spontaneous
  Country: US (occurrence: US)
  Receive Date: 20191216
  Receipt Date: 20201124
  Transmission Date: 20210113
  Serious: Yes (Other)
  Sender: FDA-Public Use
  Company Number: US-GLAXOSMITHKLINE-US2019AMR224518

PATIENT
  Age: 65 Year
  Sex: Female

DRUGS (3)
  1. LAMOTRIGINE. [Suspect]
     Active Substance: LAMOTRIGINE
     Indication: PRODUCT USED FOR UNKNOWN INDICATION
     Dosage: 300 MG
     Route: 065
     Dates: start: 20191208
  2. LAMICTAL XR [Suspect]
     Active Substance: LAMOTRIGINE
     Dosage: 300 MG
     Route: 065
  3. LAMICTAL XR [Suspect]
     Active Substance: LAMOTRIGINE
     Indication: SEIZURE
     Dosage: 100 MG
     Route: 065

REACTIONS (5)
  - Seizure [Unknown]
  - Headache [Unknown]
  - Chemotherapy [Unknown]
  - Breast cancer [Unknown]
  - Pain [Unknown]

NARRATIVE: CASE EVENT DATE: 201903
